FAERS Safety Report 9097089 (Version 3)
Quarter: 2015Q1

REPORT INFORMATION
  Report Type: Spontaneous
  Country: US (occurrence: None)
  Receive Date: 20130125
  Receipt Date: 20150202
  Transmission Date: 20150721
  Serious: Yes (Death)
  Sender: FDA-Public Use
  Company Number: TPA2013A00912

PATIENT
  Age: 61 Year
  Sex: Female
  Weight: 49.9 kg

DRUGS (19)
  1. LORAZEPAM. [Concomitant]
     Active Substance: LORAZEPAM
  2. OXYCONTIN [Concomitant]
     Active Substance: OXYCODONE HYDROCHLORIDE
  3. MEGESTROL [Concomitant]
     Active Substance: MEGESTROL
  4. PAROXETINE [Concomitant]
     Active Substance: PAROXETINE\PAROXETINE HYDROCHLORIDE
  5. PRAVASTATIN [Concomitant]
     Active Substance: PRAVASTATIN\PRAVASTATIN SODIUM
  6. DUONEB [Concomitant]
     Active Substance: ALBUTEROL SULFATE\IPRATROPIUM BROMIDE
  7. VOLTAREN 1 % TOPICAL GEL (DICLOFENAC) [Concomitant]
  8. WARFARIN [Concomitant]
     Active Substance: WARFARIN
  9. MAGNESIUM OXIDE. [Concomitant]
     Active Substance: MAGNESIUM OXIDE
  10. SCOPOLAMINE (SCOPOLAMINE AMINOXIDE) [Concomitant]
  11. VITAMIN D3 (COLECALCIFEROL) [Concomitant]
  12. DEXILANT [Suspect]
     Active Substance: DEXLANSOPRAZOLE
     Indication: GASTROOESOPHAGEAL REFLUX DISEASE
     Dosage: 60 MG, 1 IN 1 D
     Route: 048
     Dates: start: 20110305
  13. NYSTATIN. [Concomitant]
     Active Substance: NYSTATIN
  14. ALBUTEROL (SALBUTAMOL) [Concomitant]
     Active Substance: ALBUTEROL
  15. OXYCODONE [Concomitant]
     Active Substance: OXYCODONE
  16. PROCHLORPERAZINE. [Concomitant]
     Active Substance: PROCHLORPERAZINE
  17. PROVENTIL HFA (SALBUTAMOL) [Concomitant]
  18. DEXAMETHASONE. [Concomitant]
     Active Substance: DEXAMETHASONE
  19. MORPHINE [Concomitant]
     Active Substance: MORPHINE

REACTIONS (1)
  - Overdose [None]

NARRATIVE: CASE EVENT DATE: 20130112
